FAERS Safety Report 9035678 (Version 1)
Quarter: 2013Q1

REPORT INFORMATION
  Report Type: Report from Study
  Country: US (occurrence: US)
  Receive Date: 20130129
  Receipt Date: 20130129
  Transmission Date: 20140127
  Serious: No
  Sender: FDA-Public Use
  Company Number: US-ABBOTT-12P-163-0913326-00

PATIENT
  Age: 50 Year
  Sex: Male

DRUGS (4)
  1. HUMIRA 40 MG/ 0.8 ML PRE-FILLED SYRINGE [Suspect]
     Indication: PSORIASIS
  2. MAXALT [Concomitant]
     Indication: MIGRAINE
  3. UNKNOWN MEDICATION [Concomitant]
     Indication: SLEEP DISORDER THERAPY
  4. IBUPROFEN [Concomitant]
     Indication: HEADACHE

REACTIONS (1)
  - Headache [Not Recovered/Not Resolved]
